FAERS Safety Report 7905877-0 (Version None)
Quarter: 2011Q4

REPORT INFORMATION
  Report Type: 
  Country: None (occurrence: None)
  Receive Date: 20111110
  Receipt Date: 20111107
  Transmission Date: 20120403
  Serious: Yes (Hospitalization, Disabling, Other)
  Sender: FDA-Public Use
  Company Number: US-PFIZER INC-2011054485

PATIENT
  Sex: Female

DRUGS (4)
  1. LEXAPRO [Concomitant]
     Indication: ANTIDEPRESSANT THERAPY
     Dosage: UNK
     Dates: start: 20071201, end: 20080601
  2. XANAX [Concomitant]
     Indication: ANXIETY
     Dosage: UNK
     Dates: start: 20071101, end: 20080601
  3. KLONOPIN [Concomitant]
     Indication: ANXIETY
     Dosage: UNK
     Dates: start: 20070801, end: 20080601
  4. CHANTIX [Suspect]
     Indication: SMOKING CESSATION THERAPY
     Dosage: 1 MG, UNK
     Dates: start: 20071201, end: 20080401

REACTIONS (4)
  - INTENTIONAL OVERDOSE [None]
  - SUICIDE ATTEMPT [None]
  - ANXIETY [None]
  - DEPRESSION [None]
